FAERS Safety Report 10176724 (Version 1)
Quarter: 2014Q2

REPORT INFORMATION
  Report Type: Spontaneous
  Country: US (occurrence: None)
  Receive Date: 20140515
  Receipt Date: 20140515
  Transmission Date: 20141212
  Serious: No
  Sender: FDA-Public Use
  Company Number: None

PATIENT
  Age: 37 Year
  Sex: Female
  Weight: 79.1 kg

DRUGS (5)
  1. DELFLEX [Suspect]
     Indication: RENAL FAILURE CHRONIC
     Dosage: 17L OVERNIGHT CCPD
     Dates: start: 20131227, end: 20140127
  2. DELFLEX [Suspect]
     Indication: RENAL FAILURE CHRONIC
     Dosage: 17L OVERNIGHT CCPD
     Dates: start: 20131227, end: 20140127
  3. FRESENIUS LIBERTY CYCLER [Concomitant]
  4. FRESENIUS STAY SAFE CYCLER SET [Concomitant]
  5. DELFLEX PERITONEAL DIALYSIS SOLUTION [Concomitant]

REACTIONS (1)
  - Fungal peritonitis [None]
